FAERS Safety Report 4319455-6 (Version None)
Quarter: 2004Q1

REPORT INFORMATION
  Report Type: 
  Country: None (occurrence: None)
  Receive Date: 20040316
  Receipt Date: 20040308
  Transmission Date: 20041129
  Serious: Yes (Hospitalization)
  Sender: FDA-Public Use
  Company Number: US-JNJFOC-20030802082

PATIENT
  Age: 26 Year
  Sex: Female
  Weight: 77.1115 kg

DRUGS (1)
  1. ORTHO EVRA [Suspect]
     Indication: CONTRACEPTION
     Dosage: 1 DOSE(S), 3 IN 4 WEEKS, TRANSDERMAL
     Route: 062
     Dates: start: 20020801

REACTIONS (13)
  - ABSCESS [None]
  - BACTERIAL INFECTION [None]
  - CELLULITIS [None]
  - DRUG INEFFECTIVE [None]
  - FASCIITIS [None]
  - HYPERAEMIA [None]
  - METRORRHAGIA [None]
  - OPEN WOUND [None]
  - OSTEOMYELITIS [None]
  - POST PROCEDURAL COMPLICATION [None]
  - STAPHYLOCOCCAL INFECTION [None]
  - SUBCUTANEOUS EMPHYSEMA [None]
  - SURGICAL PROCEDURE REPEATED [None]
